FAERS Safety Report 12506272 (Version 1)
Quarter: 2016Q2

REPORT INFORMATION
  Report Type: Spontaneous
  Country: GB (occurrence: GB)
  Receive Date: 20160628
  Receipt Date: 20160628
  Transmission Date: 20160815
  Serious: Yes (Other)
  Sender: FDA-Public Use
  Company Number: GB-ABBVIE-16P-167-1661181-00

PATIENT
  Sex: Male

DRUGS (2)
  1. NORVIR [Suspect]
     Active Substance: RITONAVIR
     Indication: HIV INFECTION
     Route: 048
  2. METHADONE [Concomitant]
     Active Substance: METHADONE HYDROCHLORIDE
     Indication: NEOPLASM MALIGNANT

REACTIONS (9)
  - Incorrect dose administered [Unknown]
  - Neoplasm malignant [Unknown]
  - Abnormal behaviour [Unknown]
  - Accident [Unknown]
  - Anger [Unknown]
  - Drug dispensing error [Unknown]
  - Aphasia [Unknown]
  - Memory impairment [Unknown]
  - Confusional state [Unknown]

NARRATIVE: CASE EVENT DATE: 20160621
